FAERS Safety Report 7003345-4 (Version None)
Quarter: 2010Q3

REPORT INFORMATION
  Report Type: 
  Country: None (occurrence: None)
  Receive Date: 20100920
  Receipt Date: 20100907
  Transmission Date: 20110219
  Serious: Yes (Death)
  Sender: FDA-Public Use
  Company Number: CN-WATSON-2010-12184

PATIENT
  Age: 42 Year
  Sex: Male

DRUGS (1)
  1. CLINDAMYCIN HYDROCHLORIDE [Suspect]
     Indication: EPIGLOTTITIS
     Dosage: 1.2 G, FOR 20 MINUTES
     Route: 042

REACTIONS (1)
  - LARYNGEAL OEDEMA [None]
